FAERS Safety Report 18070561 (Version 2)
Quarter: 2021Q2

REPORT INFORMATION
  Report Type: Spontaneous
  Country: JP (occurrence: JP)
  Receive Date: 20200727
  Receipt Date: 20210628
  Transmission Date: 20210717
  Serious: Yes (Other)
  Sender: FDA-Public Use
  Company Number: JP-TEVA-2020-JP-1805904

PATIENT
  Age: 70 Year
  Sex: Male

DRUGS (5)
  1. VINCRISTINE [Suspect]
     Active Substance: VINCRISTINE
     Indication: ADRENAL GLAND CANCER
     Dosage: R?CHOP CHEMOTHERAPY; 1 CYCLE
     Route: 065
  2. PREDNISOLONE. [Suspect]
     Active Substance: PREDNISOLONE
     Indication: ADRENAL GLAND CANCER
     Dosage: R?CHOP CHEMOTHERAPY; 1 CYCLE
     Route: 065
  3. CYCLOPHOSPHAMIDE. [Suspect]
     Active Substance: CYCLOPHOSPHAMIDE
     Indication: ADRENAL GLAND CANCER
     Dosage: R?CHOP CHEMOTHERAPY; 1 CYCLE
     Route: 065
  4. RITUXIMAB. [Suspect]
     Active Substance: RITUXIMAB
     Indication: ADRENAL GLAND CANCER
     Dosage: R?CHOP CHEMOTHERAPY; 2 CYCLES
     Route: 065
  5. DOXORUBICIN [Suspect]
     Active Substance: DOXORUBICIN
     Indication: ADRENAL GLAND CANCER
     Dosage: R?CHOP CHEMOTHERAPY; 1 CYCLE
     Route: 065

REACTIONS (5)
  - Disseminated intravascular coagulation [Unknown]
  - Splenic haemorrhage [Unknown]
  - Cardiac failure congestive [Unknown]
  - Drug ineffective [Unknown]
  - Tumour lysis syndrome [Unknown]
